FAERS Safety Report 18317791 (Version 1)
Quarter: 2020Q3

REPORT INFORMATION
  Report Type: Spontaneous
  Country: US (occurrence: US)
  Receive Date: 20200928
  Receipt Date: 20200928
  Transmission Date: 20201103
  Serious: No
  Sender: FDA-Public Use
  Company Number: US-ALLERGAN-1952148US

PATIENT
  Sex: Male

DRUGS (4)
  1. BUPROPION. [Concomitant]
     Active Substance: BUPROPION
     Dosage: 300 UNK
  2. LAMOTRIGINE. [Concomitant]
     Active Substance: LAMOTRIGINE
     Dosage: 25 MG
  3. BUPROPION. [Concomitant]
     Active Substance: BUPROPION
     Dosage: 150 MG
  4. ESCITALOPRAM OXALATE ? BP [Suspect]
     Active Substance: ESCITALOPRAM OXALATE
     Indication: DEPRESSION

REACTIONS (1)
  - Drug ineffective [Unknown]
